FAERS Safety Report 4587481-8 (Version None)
Quarter: 2005Q1

REPORT INFORMATION
  Report Type: 
  Country: None (occurrence: None)
  Receive Date: 20050215
  Receipt Date: 20050207
  Transmission Date: 20050727
  Serious: No
  Sender: FDA-Public Use
  Company Number: 2005UW02071

PATIENT
  Sex: Female

DRUGS (1)
  1. NEXIUM [Suspect]

REACTIONS (1)
  - MYOCARDIAL INFARCTION [None]
